FAERS Safety Report 6875763-6 (Version None)
Quarter: 2010Q3

REPORT INFORMATION
  Report Type: 
  Country: None (occurrence: None)
  Receive Date: 20100727
  Receipt Date: 20070919
  Transmission Date: 20110219
  Serious: Yes (Hospitalization, Other)
  Sender: FDA-Public Use
  Company Number: US-PFIZER INC-2006122297

PATIENT
  Sex: Male
  Weight: 91.2 kg

DRUGS (5)
  1. CELEBREX [Suspect]
     Indication: RHEUMATOID ARTHRITIS
     Dates: start: 20040116
  2. CELEBREX [Suspect]
     Indication: OSTEOARTHRITIS
  3. VIOXX [Suspect]
     Indication: RHEUMATOID ARTHRITIS
     Dates: start: 20000604
  4. VIOXX [Suspect]
     Indication: OSTEOARTHRITIS
  5. CLONIDINE [Concomitant]
     Dates: start: 20030222

REACTIONS (1)
  - RASH [None]
